FAERS Safety Report 8092135-X (Version None)
Quarter: 2012Q1

REPORT INFORMATION
  Report Type: 
  Country: None (occurrence: None)
  Receive Date: 20120129
  Receipt Date: 20111115
  Transmission Date: 20120608
  Serious: No
  Sender: FDA-Public Use
  Company Number: US-ABBOTT-11P-163-0874291-00

PATIENT
  Sex: Male

DRUGS (6)
  1. HUMIRA [Suspect]
     Indication: CROHN'S DISEASE
     Dates: start: 20090101
  2. PROZAC [Concomitant]
     Indication: DEPRESSION
  3. WELLBUTRIN [Concomitant]
     Indication: DEPRESSION
  4. UNKNOWN DIABETIC MEDICATION [Concomitant]
     Indication: DIABETES MELLITUS
  5. PENTASSA [Concomitant]
     Indication: CROHN'S DISEASE
  6. ALDACTONE [Concomitant]
     Indication: FLUID RETENTION

REACTIONS (1)
  - URINARY TRACT INFECTION [None]
